FAERS Safety Report 13657366 (Version 2)
Quarter: 2017Q3

REPORT INFORMATION
  Report Type: Report from Study
  Country: US (occurrence: US)
  Receive Date: 20170615
  Receipt Date: 20170822
  Transmission Date: 20171127
  Serious: Yes (Other)
  Sender: FDA-Public Use
  Company Number: US-GILEAD-2017-0277790

PATIENT
  Age: 66 Year
  Sex: Male

DRUGS (1)
  1. RANOLAZINE. [Suspect]
     Active Substance: RANOLAZINE
     Indication: ANGINA PECTORIS
     Dosage: 1000 MG, UNK
     Route: 048
     Dates: end: 201705

REACTIONS (6)
  - Coronary artery bypass [Unknown]
  - Arthropathy [Recovered/Resolved]
  - Memory impairment [Recovered/Resolved]
  - Mental impairment [Recovered/Resolved]
  - Intentional dose omission [Recovered/Resolved]
  - Cardiac operation [Unknown]

NARRATIVE: CASE EVENT DATE: 2009
